FAERS Safety Report 4985753-6 (Version None)
Quarter: 2006Q2

REPORT INFORMATION
  Report Type: 
  Country: None (occurrence: None)
  Receive Date: 20060428
  Receipt Date: 20050505
  Transmission Date: 20061013
  Serious: No
  Sender: FDA-Public Use
  Company Number: US-GLAXOSMITHKLINE-A0557396A

PATIENT

DRUGS (1)
  1. ZOFRAN [Suspect]
     Indication: PROPHYLAXIS OF NAUSEA AND VOMITING
     Dosage: 32MG SINGLE DOSE
     Route: 042

REACTIONS (2)
  - DIZZINESS [None]
  - VISION BLURRED [None]
